FAERS Safety Report 4347088-4 (Version None)
Quarter: 2004Q2

REPORT INFORMATION
  Report Type: 
  Country: None (occurrence: None)
  Receive Date: 20040426
  Receipt Date: 20040422
  Transmission Date: 20050107
  Serious: Yes (Hospitalization)
  Sender: FDA-Public Use
  Company Number: FR-GLAXOSMITHKLINE-B0330721A

PATIENT
  Age: 38 Year
  Sex: Male
  Weight: 72 kg

DRUGS (7)
  1. AMOXICILLIN [Suspect]
     Dosage: 500MG FOUR TIMES PER DAY
     Route: 048
     Dates: start: 20040329, end: 20040401
  2. BACTRIM [Suspect]
     Dosage: 400MG UNKNOWN
     Route: 048
     Dates: start: 20040323, end: 20040331
  3. FLAGYL [Suspect]
     Dosage: 500MG UNKNOWN
     Route: 048
     Dates: start: 20040329, end: 20040401
  4. THYMOGLOBULIN [Suspect]
     Dosage: 50MG PER DAY
     Route: 042
     Dates: start: 20040320
  5. CELLCEPT [Concomitant]
     Dosage: 1G TWICE PER DAY
     Route: 065
  6. CORTICOID [Concomitant]
     Dosage: 20MG PER DAY
     Route: 042
  7. NEORAL [Concomitant]
     Route: 048
     Dates: start: 20040402

REACTIONS (9)
  - APHASIA [None]
  - ARTHRALGIA [None]
  - EAR PAIN [None]
  - ELECTROCARDIOGRAM REPOLARISATION ABNORMALITY [None]
  - HEMIPLEGIA [None]
  - NECK PAIN [None]
  - PYREXIA [None]
  - RASH ERYTHEMATOUS [None]
  - SERUM SICKNESS [None]
